FAERS Safety Report 26194663 (Version 1)
Quarter: 2025Q4

REPORT INFORMATION
  Report Type: Spontaneous
  Country: US (occurrence: US)
  Receive Date: 20251224
  Receipt Date: 20251224
  Transmission Date: 20260118
  Serious: No
  Sender: Kenvue
  Company Number: US-KENVUE-20251109738

PATIENT
  Sex: Female

DRUGS (22)
  1. IMODIUM [Suspect]
     Active Substance: LOPERAMIDE HYDROCHLORIDE
     Indication: Diarrhoea
     Route: 065
  2. REMODULIN [Concomitant]
     Active Substance: TREPROSTINIL
     Indication: Pulmonary arterial hypertension
     Dosage: 0.027 MICROGRAM/KILOGRAM
  3. REMODULIN [Concomitant]
     Active Substance: TREPROSTINIL
     Dosage: 0.027 MICROGRAM/KILOGRAM
  4. REMODULIN [Concomitant]
     Active Substance: TREPROSTINIL
     Dosage: 0.01779 ?G/KG
  5. REMODULIN [Concomitant]
     Active Substance: TREPROSTINIL
     Dosage: 0.01279 ?G/KG
  6. REMODULIN [Concomitant]
     Active Substance: TREPROSTINIL
     Dosage: 0.00679 ?G/KG
  7. ORENITRAM [Concomitant]
     Active Substance: TREPROSTINIL
     Indication: Pulmonary arterial hypertension
     Dosage: 0.125 MILLIGRAM, THRICE A DAY
     Route: 061
     Dates: start: 202509, end: 202509
  8. ORENITRAM [Concomitant]
     Active Substance: TREPROSTINIL
     Dosage: 0.875 MG (1 TABLET OF 0.125MG AND 3 TABLETS OF 0.25 MG) TID
     Route: 061
     Dates: start: 202509, end: 202509
  9. ORENITRAM [Concomitant]
     Active Substance: TREPROSTINIL
     Dosage: 1.125 MG (1-1 MG+1-0.125 MG TABLETS), TID
     Route: 061
     Dates: start: 202509
  10. ORENITRAM [Concomitant]
     Active Substance: TREPROSTINIL
     Dosage: 1.75 MG (TAKING 1-1MG AND 3-0.25MG TABLETS), TID
     Route: 061
     Dates: start: 202509
  11. ORENITRAM [Concomitant]
     Active Substance: TREPROSTINIL
     Dosage: 2.5 MILLIGRAM, THRICE A DAY
     Route: 061
     Dates: start: 2025
  12. ORENITRAM [Concomitant]
     Active Substance: TREPROSTINIL
     Dosage: 0.5 MILLIGRAM, THRICE A DAY
     Route: 061
     Dates: start: 2025, end: 20251029
  13. ORENITRAM [Concomitant]
     Active Substance: TREPROSTINIL
     Dosage: 3.125 MILLIGRAM
     Route: 061
  14. ORENITRAM [Concomitant]
     Active Substance: TREPROSTINIL
     Dosage: 3.25 MG (TAKING 1-2.5 MG AND 1-0.75 MG) AND 3 MG, TID
     Route: 061
     Dates: start: 2025, end: 202511
  15. ORENITRAM [Concomitant]
     Active Substance: TREPROSTINIL
     Dosage: 3 MG (DOSE DECREASED), TID
     Route: 061
     Dates: start: 202511
  16. ORENITRAM [Concomitant]
     Active Substance: TREPROSTINIL
     Dosage: UNK
     Route: 061
  17. OPSUMIT [Concomitant]
     Active Substance: MACITENTAN
     Indication: Product used for unknown indication
     Route: 065
  18. WINREVAIR [Concomitant]
     Active Substance: SOTATERCEPT-CSRK
     Indication: Product used for unknown indication
     Dosage: UNK
     Route: 065
  19. WINREVAIR [Concomitant]
     Active Substance: SOTATERCEPT-CSRK
     Dosage: MAINTENANCE DOSE
     Route: 065
  20. ADCIRCA [Concomitant]
     Active Substance: TADALAFIL
     Indication: Pulmonary arterial hypertension
     Dosage: 40 MILLIGRAM, ONCE A DAY
     Route: 061
     Dates: start: 202103
  21. TYLENOL [Concomitant]
     Active Substance: ACETAMINOPHEN
     Indication: Headache
     Route: 065
  22. TYLENOL [Concomitant]
     Active Substance: ACETAMINOPHEN
     Indication: Pain in jaw

REACTIONS (1)
  - Constipation [Unknown]
